FAERS Safety Report 6469325-2 (Version None)
Quarter: 2009Q4

REPORT INFORMATION
  Report Type: 
  Country: None (occurrence: None)
  Receive Date: 20091201
  Receipt Date: 20091120
  Transmission Date: 20100525
  Serious: Yes (Death, Hospitalization)
  Sender: FDA-Public Use
  Company Number: CIP09003260

PATIENT
  Age: 81 Year
  Sex: Female

DRUGS (1)
  1. ACTONEL [Suspect]
     Dosage: 1 TABLET CYCLIC DAILY, ORAL
     Route: 048
     Dates: start: 20080902

REACTIONS (5)
  - ASTHENIA [None]
  - FOOD INTOLERANCE [None]
  - GASTROOESOPHAGEAL REFLUX DISEASE [None]
  - GENERALISED OEDEMA [None]
  - PNEUMONIA [None]
